FAERS Safety Report 23294119 (Version 1)
Quarter: 2023Q4

REPORT INFORMATION
  Report Type: Spontaneous
  Country: US (occurrence: US)
  Receive Date: 20231213
  Receipt Date: 20231213
  Transmission Date: 20240110
  Serious: No
  Sender: FDA-Public Use
  Company Number: US-PFIZER INC-202300444418

PATIENT
  Age: 67 Year
  Sex: Female

DRUGS (1)
  1. EXEMESTANE [Suspect]
     Active Substance: EXEMESTANE
     Indication: Breast cancer metastatic
     Dosage: TAKE 1 TABLET (25 MG TOTAL) BY MOUTH ONCE DAILY
     Route: 048
     Dates: start: 2022

REACTIONS (1)
  - Neoplasm progression [Unknown]
